FAERS Safety Report 5677656-9 (Version None)
Quarter: 2008Q1

REPORT INFORMATION
  Report Type: 
  Country: None (occurrence: None)
  Receive Date: 20080324
  Receipt Date: 20080313
  Transmission Date: 20080703
  Serious: Yes (Hospitalization)
  Sender: FDA-Public Use
  Company Number: US-ELI_LILLY_AND_COMPANY-US200801001522

PATIENT
  Age: 82 Year
  Sex: Male

DRUGS (5)
  1. CYMBALTA [Suspect]
     Indication: NEURALGIA
     Dosage: 30 MG, DAILY (1/D)
     Dates: end: 20080309
  2. CYMBALTA [Interacting]
     Dosage: 60 MG, UNK
     Dates: start: 20080310
  3. TRAMADOL HCL [Concomitant]
     Indication: PAIN
     Dosage: 1 D/F, 2/D
  4. LIDOCAINE [Concomitant]
     Route: 061
  5. LYRICA [Concomitant]

REACTIONS (5)
  - DRUG INTERACTION [None]
  - FALL [None]
  - FEELING ABNORMAL [None]
  - INCONTINENCE [None]
  - MEMORY IMPAIRMENT [None]
